FAERS Safety Report 15823414 (Version 1)
Quarter: 2019Q1

REPORT INFORMATION
  Report Type: Report from Study
  Country: CN (occurrence: CN)
  Receive Date: 20190114
  Receipt Date: 20190114
  Transmission Date: 20190417
  Serious: Yes (Other)
  Sender: FDA-Public Use
  Company Number: CN-ELI_LILLY_AND_COMPANY-CN201901004512

PATIENT
  Age: 44 Year
  Sex: Male

DRUGS (2)
  1. CETUXIMAB. [Suspect]
     Active Substance: CETUXIMAB
     Dosage: 900 MG, 2/W (7 VIALS)
     Route: 042
  2. CETUXIMAB. [Suspect]
     Active Substance: CETUXIMAB
     Indication: COLON CANCER
     Dosage: 900 MG, 2/W (9 VIALS)
     Route: 042
     Dates: start: 20180126

REACTIONS (3)
  - Rash erythematous [Recovering/Resolving]
  - Off label use [Unknown]
  - Skin swelling [Recovering/Resolving]

NARRATIVE: CASE EVENT DATE: 20181219
